FAERS Safety Report 7920013-2 (Version None)
Quarter: 2011Q4

REPORT INFORMATION
  Report Type: 
  Country: None (occurrence: None)
  Receive Date: 20111117
  Receipt Date: 20111111
  Transmission Date: 20120403
  Serious: Yes (Other)
  Sender: FDA-Public Use
  Company Number: ES-BAYER-2011-110314

PATIENT
  Age: 68 Year
  Sex: Male

DRUGS (6)
  1. CHLORPROMAZINE HCL [Concomitant]
     Indication: AGITATION
     Route: 042
     Dates: start: 20110912, end: 20110914
  2. AMIODARONE HCL [Concomitant]
     Indication: VENTRICULAR FIBRILLATION
     Dosage: 300 MG, QD
     Route: 042
     Dates: start: 20110912
  3. ASPIRIN [Suspect]
     Indication: PERIPHERAL VASCULAR DISORDER
     Route: 048
     Dates: start: 20100101
  4. ANGIOMAX [Interacting]
     Indication: CATHETERISATION CARDIAC
     Dosage: 1 DF, UNK
     Route: 042
     Dates: start: 20110912, end: 20110913
  5. PRASUGREL [Interacting]
     Indication: CATHETERISATION CARDIAC
     Dosage: 60 MG, QD
     Route: 048
     Dates: start: 20110912, end: 20110912
  6. ENOXAPARIN SODIUM [Interacting]
     Indication: CATHETERISATION CARDIAC
     Route: 058
     Dates: start: 20110912, end: 20110913

REACTIONS (1)
  - ANAEMIA [None]
